FAERS Safety Report 5621103-X (Version None)
Quarter: 2008Q1

REPORT INFORMATION
  Report Type: 
  Country: None (occurrence: None)
  Receive Date: 20080114
  Receipt Date: 20070116
  Transmission Date: 20080703
  Serious: Yes (Hospitalization)
  Sender: FDA-Public Use
  Company Number: A03200700504

PATIENT
  Age: 62 Year
  Sex: Female

DRUGS (16)
  1. PLAVIX [Suspect]
     Indication: VASCULAR GRAFT
     Dosage: 75 MG QD - ORAL
     Route: 048
     Dates: start: 20050101, end: 20070101
  2. COUMADIN [Suspect]
     Indication: HEART RATE IRREGULAR
     Dosage: ORAL
     Route: 048
     Dates: start: 20060101
  3. COUMADIN [Suspect]
     Indication: HEART RATE IRREGULAR
     Dosage: 6 MG QD - ORAL
     Route: 048
     Dates: start: 20061101
  4. ASPIRIN [Suspect]
     Dosage: 81 MG QD - ORAL
     Route: 048
     Dates: start: 20050101, end: 20060101
  5. ATORVASTATIN CALCIUM [Concomitant]
  6. TOPIRAMATE [Concomitant]
  7. VALPROATE SODIUM [Concomitant]
  8. FUROSEMIDE [Concomitant]
  9. URISED [Concomitant]
  10. MOMETASONE FUROATE [Concomitant]
  11. TIOTROPIUM BROMIDE [Concomitant]
  12. METOPROLOL TARTRATE [Concomitant]
  13. POTASSIUM CHLORIDE [Concomitant]
  14. DEXTROPROPOXYPHENE HYDROCHLORIDE [Concomitant]
  15. ALBUTEROL [Concomitant]
  16. MONTELUKAST SODIUM [Concomitant]

REACTIONS (1)
  - EPISTAXIS [None]
